FAERS Safety Report 20575193 (Version 3)
Quarter: 2023Q2

REPORT INFORMATION
  Report Type: Spontaneous
  Country: US (occurrence: US)
  Receive Date: 20220310
  Receipt Date: 20230504
  Transmission Date: 20230721
  Serious: Yes (Hospitalization, Other)
  Sender: FDA-Public Use
  Company Number: US-SUN PHARMACEUTICAL INDUSTRIES LTD-2022R1-328878

PATIENT
  Age: 37 Week
  Sex: Male

DRUGS (1)
  1. METHADONE [Suspect]
     Active Substance: METHADONE HYDROCHLORIDE
     Indication: Drug dependence
     Dosage: 30 MILLIGRAM, DAILY
     Route: 064

REACTIONS (8)
  - Drug withdrawal syndrome neonatal [Unknown]
  - Foetal exposure during pregnancy [Unknown]
  - Congenital hypothyroidism [Recovered/Resolved]
  - Hypertonia [Recovered/Resolved]
  - Exaggerated startle response [Recovered/Resolved]
  - Tremor [Recovered/Resolved]
  - Sneezing [Recovered/Resolved]
  - Tachypnoea [Recovered/Resolved]
